FAERS Safety Report 25430813 (Version 1)
Quarter: 2025Q2

REPORT INFORMATION
  Report Type: Spontaneous
  Country: US (occurrence: US)
  Receive Date: 20250612
  Receipt Date: 20250612
  Transmission Date: 20250717
  Serious: No
  Sender: ELI LILLY AND COMPANY
  Company Number: US-ELI_LILLY_AND_COMPANY-US202506007341

PATIENT
  Age: 59 Year
  Sex: Male

DRUGS (5)
  1. ERBITUX [Suspect]
     Active Substance: CETUXIMAB
     Indication: Hepatic cancer metastatic
     Route: 065
  2. ERBITUX [Suspect]
     Active Substance: CETUXIMAB
     Route: 065
  3. ERBITUX [Suspect]
     Active Substance: CETUXIMAB
     Indication: Hepatic cancer metastatic
     Route: 065
  4. ERBITUX [Suspect]
     Active Substance: CETUXIMAB
     Route: 065
  5. ERBITUX [Suspect]
     Active Substance: CETUXIMAB
     Route: 065

REACTIONS (5)
  - Abdominal pain [Unknown]
  - Hypophagia [Unknown]
  - Diarrhoea [Unknown]
  - Dehydration [Unknown]
  - Off label use [Unknown]

NARRATIVE: CASE EVENT DATE: 20250423
